FAERS Safety Report 5561298-X (Version None)
Quarter: 2007Q4

REPORT INFORMATION
  Report Type: 
  Country: None (occurrence: None)
  Receive Date: 20071215
  Receipt Date: 20071025
  Transmission Date: 20080405
  Serious: No
  Sender: FDA-Public Use
  Company Number: US-AMGEN-KDL249704

PATIENT
  Sex: Female

DRUGS (2)
  1. ENBREL [Suspect]
     Indication: RHEUMATOID ARTHRITIS
     Route: 058
     Dates: start: 20061001
  2. METHOTREXATE [Concomitant]
     Dates: start: 20050101

REACTIONS (5)
  - HYPERSENSITIVITY [None]
  - INJECTION SITE PAIN [None]
  - LACRIMATION INCREASED [None]
  - RHINORRHOEA [None]
  - SINUSITIS [None]
